FAERS Safety Report 7900785-3 (Version None)
Quarter: 2011Q4

REPORT INFORMATION
  Report Type: 
  Country: None (occurrence: None)
  Receive Date: 20111108
  Receipt Date: 20111028
  Transmission Date: 20120403
  Serious: Yes (Hospitalization)
  Sender: FDA-Public Use
  Company Number: US-ASTELLAS-2011US002209

PATIENT
  Sex: Male
  Weight: 34 kg

DRUGS (9)
  1. ALBUTEROL [Concomitant]
     Indication: ASTHMA
     Dosage: 0.083 %, QID
     Route: 055
     Dates: start: 20070909
  2. SINGULAIR [Concomitant]
     Indication: ASTHMA
     Dosage: 5 MG, UID/QD
     Route: 065
     Dates: start: 20070909
  3. QVAR 40 [Concomitant]
     Indication: ASTHMA
     Dosage: 40 MG, BID
     Route: 065
     Dates: start: 20110101
  4. SINGULAIR [Concomitant]
     Indication: HYPERSENSITIVITY
  5. ORAPRED [Concomitant]
     Indication: PRODUCT USED FOR UNKNOWN INDICATION
     Dosage: 30 MG, BID
     Route: 048
  6. ABILIFY [Concomitant]
     Indication: ATTENTION DEFICIT/HYPERACTIVITY DISORDER
     Dosage: 2 MG, BID
     Route: 065
     Dates: start: 20080905
  7. TACROLIMUS [Suspect]
     Indication: DERMATITIS ATOPIC
     Dosage: 0.03 %, WEEKLY
     Route: 061
     Dates: start: 20070706
  8. PULMICORT [Concomitant]
     Indication: ASTHMA
     Dosage: 0.50 MG, BID
     Route: 055
     Dates: start: 20070909
  9. ZYRTEC [Concomitant]
     Indication: HYPERSENSITIVITY
     Dosage: 5 MG, UID/QD
     Route: 065
     Dates: start: 20070909

REACTIONS (1)
  - STATUS ASTHMATICUS [None]
